FAERS Safety Report 9049639 (Version 2)
Quarter: 2013Q1

REPORT INFORMATION
  Report Type: Spontaneous
  Country: AU (occurrence: AU)
  Receive Date: 20130205
  Receipt Date: 20130319
  Transmission Date: 20140127
  Serious: Yes (Death)
  Sender: FDA-Public Use
  Company Number: PHHY2012AU126765

PATIENT
  Age: 85 None
  Sex: Male

DRUGS (2)
  1. ACLASTA [Suspect]
     Dosage: UNK
     Route: 042
  2. NORSPAN-M [Concomitant]
     Dosage: UNK UKN, WEEKLY
     Route: 061

REACTIONS (1)
  - Death [Fatal]
